FAERS Safety Report 25952153 (Version 1)
Quarter: 2025Q4

REPORT INFORMATION
  Report Type: Spontaneous
  Country: BR (occurrence: BR)
  Receive Date: 20251023
  Receipt Date: 20251023
  Transmission Date: 20260117
  Serious: Yes (Hospitalization)
  Sender: GLAXOSMITHKLINE
  Company Number: BR-GSK-BR2025AMR131512

PATIENT
  Sex: Male

DRUGS (1)
  1. SERETIDE [Suspect]
     Active Substance: FLUTICASONE PROPIONATE\SALMETEROL XINAFOATE
     Indication: Product used for unknown indication
     Dosage: UNK 25/50

REACTIONS (4)
  - Hospitalisation [Not Recovered/Not Resolved]
  - Throat irritation [Not Recovered/Not Resolved]
  - Oral pain [Not Recovered/Not Resolved]
  - Ageusia [Not Recovered/Not Resolved]

NARRATIVE: CASE EVENT DATE: 20250621
